FAERS Safety Report 6063674-8 (Version None)
Quarter: 2009Q1

REPORT INFORMATION
  Report Type: 
  Country: None (occurrence: None)
  Receive Date: 20090129
  Receipt Date: 20090120
  Transmission Date: 20090719
  Serious: Yes (Disabling)
  Sender: FDA-Public Use
  Company Number: OSCN-PR-0701L-0006

PATIENT
  Age: 9 Year
  Sex: Male

DRUGS (7)
  1. OMNISCAN [Suspect]
     Indication: DRUG USE FOR UNKNOWN INDICATION
     Dosage: SINGLE DOSE, I.V.
     Route: 042
     Dates: start: 20020601, end: 20020601
  2. SEVELAMER [Concomitant]
  3. EXTENDED RELEASE NIFEDIPINE [Concomitant]
  4. CALCITRIOL [Concomitant]
  5. CALCIUM CARBONATE [Concomitant]
  6. IRON [Concomitant]
  7. EPOGEN [Concomitant]

REACTIONS (4)
  - CARDIO-RESPIRATORY ARREST [None]
  - NEPHROGENIC SYSTEMIC FIBROSIS [None]
  - PULMONARY EMBOLISM [None]
  - RENAL TRANSPLANT [None]
